FAERS Safety Report 9526840 (Version 6)
Quarter: 2014Q1

REPORT INFORMATION
  Report Type: Spontaneous
  Country: JP (occurrence: JP)
  Receive Date: 20130916
  Receipt Date: 20140130
  Transmission Date: 20141002
  Serious: Yes (Other)
  Sender: FDA-Public Use
  Company Number: PHHY2013JP090426

PATIENT
  Age: 82 Year
  Sex: Female
  Weight: 52 kg

DRUGS (5)
  1. DIOVAN [Suspect]
     Indication: HYPERTENSION
     Dosage: 40 MG, DAILY
     Route: 048
     Dates: start: 201303, end: 20130719
  2. BEZATOL - SLOW RELEASE [Suspect]
     Indication: HYPERLIPIDAEMIA
     Dosage: 800 MG, DAILY
     Route: 048
     Dates: start: 201303, end: 20130719
  3. MUCOSTA [Concomitant]
     Indication: GASTRITIS
     Dosage: 100 MG, UNK
     Route: 048
     Dates: start: 20130617
  4. MUCOSTA [Concomitant]
     Dosage: 200 MG, UNK
     Route: 048
  5. AMLODIPINE//AMLODIPINE BESILATE [Concomitant]
     Indication: HYPERTENSION
     Dosage: 2.5 MG, UNK
     Route: 048
     Dates: start: 20130730, end: 20130801

REACTIONS (13)
  - Drug eruption [Not Recovered/Not Resolved]
  - Blister [Not Recovered/Not Resolved]
  - Erythema [Not Recovered/Not Resolved]
  - Rash [Not Recovered/Not Resolved]
  - Allergy to metals [Unknown]
  - Arthropod bite [Unknown]
  - Somnolence [Unknown]
  - Condition aggravated [Unknown]
  - Scab [Unknown]
  - Hyperhidrosis [Unknown]
  - Papule [Unknown]
  - Prurigo [Unknown]
  - Pruritus [Unknown]
